FAERS Safety Report 16451362 (Version 3)
Quarter: 2020Q2

REPORT INFORMATION
  Report Type: Spontaneous
  Country: US (occurrence: US)
  Receive Date: 20190619
  Receipt Date: 20200629
  Transmission Date: 20200713
  Serious: No
  Sender: FDA-Public Use
  Company Number: US-PFIZER INC-2019258743

PATIENT
  Age: 81 Year
  Sex: Female
  Weight: 63.49 kg

DRUGS (3)
  1. PREMARIN [Suspect]
     Active Substance: ESTROGENS, CONJUGATED
     Indication: VAGINAL DISORDER
     Dosage: UNK
     Route: 067
  2. GABAPENTIN. [Concomitant]
     Active Substance: GABAPENTIN
     Indication: NEUROPATHY PERIPHERAL
     Dosage: UNK
  3. PREMARIN [Suspect]
     Active Substance: ESTROGENS, CONJUGATED
     Dosage: 0.5 G, WEEKLY
     Route: 067

REACTIONS (4)
  - Off label use [Unknown]
  - Expired product administered [Unknown]
  - Hot flush [Unknown]
  - Vulvovaginal dryness [Unknown]
